FAERS Safety Report 7782531-X (Version None)
Quarter: 2011Q3

REPORT INFORMATION
  Report Type: 
  Country: None (occurrence: None)
  Receive Date: 20110923
  Receipt Date: 20110907
  Transmission Date: 20111222
  Serious: Yes (Other)
  Sender: FDA-Public Use
  Company Number: 2011SP042482

PATIENT
  Age: 34 Year
  Sex: Male

DRUGS (2)
  1. DIPROSPAN (BETAMETHASONE SODIUM PHOSPHATE/DIPROPIONAT) (BETAMETHASONE [Suspect]
     Dosage: 2 ML;  ;IV
     Route: 042
     Dates: start: 20080824, end: 20101011
  2. PREDNISOLONE [Suspect]
     Indication: NASAL POLYPS
     Dosage: 5 MG;  ;PO
     Route: 048
     Dates: start: 20091216, end: 20091230

REACTIONS (1)
  - OSTEOPENIA [None]
